FAERS Safety Report 7361463-5 (Version None)
Quarter: 2011Q1

REPORT INFORMATION
  Report Type: 
  Country: None (occurrence: None)
  Receive Date: 20110309
  Receipt Date: 20110224
  Transmission Date: 20110831
  Serious: Yes (Other)
  Sender: FDA-Public Use
  Company Number: 023785

PATIENT
  Sex: Female

DRUGS (6)
  1. PREDNISOLONE [Concomitant]
  2. CIMZIA [Suspect]
     Indication: RHEUMATOID ARTHRITIS
     Dosage: 400 MG 1X2 WEEKS, SUBCUTANEOUS
     Route: 058
     Dates: start: 20100929, end: 20101013
  3. NEXIUM [Concomitant]
  4. LIPITOR [Concomitant]
  5. OPTINATE [Concomitant]
  6. CALCICHEW [Concomitant]

REACTIONS (1)
  - ANAPHYLACTIC REACTION [None]
